FAERS Safety Report 6943634-2 (Version None)
Quarter: 2010Q3

REPORT INFORMATION
  Report Type: 
  Country: None (occurrence: None)
  Receive Date: 20100826
  Receipt Date: 20100813
  Transmission Date: 20110219
  Serious: Yes (Disabling, Other)
  Sender: FDA-Public Use
  Company Number: PHHY2010CL19660

PATIENT
  Age: 70 Year
  Sex: Female

DRUGS (2)
  1. ZOLEDRONIC [Suspect]
     Dosage: 5 MG
     Route: 042
  2. ACETAMINOPHEN [Concomitant]
     Dosage: UNK

REACTIONS (8)
  - ARTHRALGIA [None]
  - MUCOCUTANEOUS RASH [None]
  - PRURITUS [None]
  - PYREXIA [None]
  - RASH ERYTHEMATOUS [None]
  - SKIN EXFOLIATION [None]
  - STEVENS-JOHNSON SYNDROME [None]
  - TRANSAMINASES INCREASED [None]
